FAERS Safety Report 25234346 (Version 2)
Quarter: 2025Q2

REPORT INFORMATION
  Report Type: Spontaneous
  Country: US (occurrence: US)
  Receive Date: 20250424
  Receipt Date: 20250513
  Transmission Date: 20250716
  Serious: Yes (Death, Other)
  Sender: JOHNSON AND JOHNSON
  Company Number: US-JNJFOC-20250429732

PATIENT
  Age: 75 Year
  Sex: Female
  Weight: 77.7 kg

DRUGS (1)
  1. CARVYKTI [Suspect]
     Active Substance: CILTACABTAGENE AUTOLEUCEL
     Indication: Plasma cell myeloma
     Route: 041
     Dates: start: 20250226, end: 20250226

REACTIONS (10)
  - Death [Fatal]
  - Immune effector cell-associated neurotoxicity syndrome [Recovered/Resolved]
  - Cytokine release syndrome [Recovered/Resolved]
  - Subarachnoid haemorrhage [Unknown]
  - Drug ineffective [Unknown]
  - Cytopenia [Unknown]
  - Acute respiratory failure [Unknown]
  - Encephalopathy [Unknown]
  - COVID-19 [Unknown]
  - Pleural effusion [Unknown]

NARRATIVE: CASE EVENT DATE: 20250301
